FAERS Safety Report 6408854-4 (Version None)
Quarter: 2009Q4

REPORT INFORMATION
  Report Type: 
  Country: None (occurrence: None)
  Receive Date: 20091021
  Receipt Date: 20091006
  Transmission Date: 20100525
  Serious: Yes (Other)
  Sender: FDA-Public Use
  Company Number: 980108-107050098

PATIENT
  Age: 88 Year
  Sex: Female

DRUGS (5)
  1. LEVAQUIN [Suspect]
     Indication: BRONCHITIS
     Route: 041
  2. PROCAINAMIDE HCL [Concomitant]
     Indication: ATRIAL FIBRILLATION
     Route: 041
  3. ALBUTEROL [Concomitant]
     Indication: BRONCHITIS
     Route: 055
  4. CORTICOSTEROIDS [Concomitant]
     Indication: DRUG USE FOR UNKNOWN INDICATION
  5. FUROSEMIDE [Concomitant]
     Indication: DRUG USE FOR UNKNOWN INDICATION
     Route: 065

REACTIONS (2)
  - ELECTROCARDIOGRAM QT PROLONGED [None]
  - TORSADE DE POINTES [None]
